FAERS Safety Report 17395259 (Version 1)
Quarter: 2020Q1

REPORT INFORMATION
  Report Type: Spontaneous
  Country: US (occurrence: US)
  Receive Date: 20200207
  Receipt Date: 20200207
  Transmission Date: 20200409
  Serious: No
  Sender: FDA-Public Use
  Company Number: None

PATIENT
  Age: 37 Year
  Sex: Female
  Weight: 49.9 kg

DRUGS (4)
  1. PARAGARD T 380A [Suspect]
     Active Substance: COPPER
     Dates: start: 20150902, end: 20170203
  2. PROBIOTIC [Concomitant]
     Active Substance: PROBIOTICS NOS
  3. MERAINA IUD [Concomitant]
  4. DAILY VITAMINS [Concomitant]
     Active Substance: VITAMINS

REACTIONS (13)
  - Complication associated with device [None]
  - Weight increased [None]
  - Vaginal haemorrhage [None]
  - Dysmenorrhoea [None]
  - Middle insomnia [None]
  - Alopecia [None]
  - Insomnia [None]
  - Scar [None]
  - Dyspareunia [None]
  - Pollakiuria [None]
  - Uterine cyst [None]
  - Night sweats [None]
  - Fatigue [None]
